FAERS Safety Report 5157470-3 (Version None)
Quarter: 2006Q4

REPORT INFORMATION
  Report Type: 
  Country: None (occurrence: None)
  Receive Date: 20061127
  Receipt Date: 20061113
  Transmission Date: 20070319
  Serious: Yes (Life-Threatening, Hospitalization)
  Sender: FDA-Public Use
  Company Number: GB-AVENTIS-200621803GDDC

PATIENT
  Age: 47 Year
  Sex: Male

DRUGS (12)
  1. RIFAMPICIN [Suspect]
     Dosage: DOSE: UNK
     Route: 042
  2. ZOPICLONE [Suspect]
     Dosage: DOSE: UNK
  3. ATENOLOL [Suspect]
     Dosage: DOSE: UNK
     Route: 048
  4. DOXAZOSIN MESYLATE [Suspect]
     Dosage: DOSE: UNK
     Route: 048
  5. FENTANYL [Suspect]
     Dosage: DOSE: UNK
     Route: 042
  6. FENTANYL [Suspect]
     Dosage: DOSE: UNK
     Route: 061
  7. HALOPERIDOL [Suspect]
     Dosage: DOSE: UNK
  8. OMEPRAZOLE [Suspect]
     Dosage: DOSE: UNK
     Route: 048
  9. PROCYCLIDINE HYDROCHLORIDE 2MG TAB [Suspect]
     Dosage: DOSE: UNK
     Route: 048
  10. PANTOPRAZOLE SODIUM [Suspect]
     Dosage: DOSE: UNK
     Route: 042
  11. ZYVOX [Suspect]
     Indication: STAPHYLOCOCCAL INFECTION
     Route: 042
     Dates: start: 20061017, end: 20061020
  12. AMISULPRIDE [Suspect]
     Dosage: DOSE: UNK
     Route: 048

REACTIONS (2)
  - DRUG INTERACTION [None]
  - HYPERTENSION [None]
